FAERS Safety Report 5888805-1 (Version None)
Quarter: 2008Q3

REPORT INFORMATION
  Report Type: 
  Country: None (occurrence: None)
  Receive Date: 20080917
  Receipt Date: 20080917
  Transmission Date: 20090109
  Serious: Yes (Other)
  Sender: FDA-Public Use
  Company Number: None

PATIENT
  Age: 55 Year
  Sex: Female
  Weight: 68.0396 kg

DRUGS (1)
  1. DIPHENHYDRAMINE HCL [Suspect]
     Indication: SLEEP DISORDER
     Dosage: 50 MG 1/NIGHT PO
     Route: 048
     Dates: start: 20080913, end: 20080914

REACTIONS (5)
  - ABDOMINAL PAIN UPPER [None]
  - DISCOMFORT [None]
  - DRUG EFFECT DECREASED [None]
  - PHARMACEUTICAL PRODUCT COMPLAINT [None]
  - THERAPEUTIC RESPONSE UNEXPECTED WITH DRUG SUBSTITUTION [None]
